FAERS Safety Report 13029124 (Version 1)
Quarter: 2016Q4

REPORT INFORMATION
  Report Type: Spontaneous
  Country: US (occurrence: US)
  Receive Date: 20161214
  Receipt Date: 20161214
  Transmission Date: 20170207
  Serious: Yes (Other)
  Sender: FDA-Public Use
  Company Number: None

PATIENT
  Age: 42 Year
  Sex: Female
  Weight: 92.25 kg

DRUGS (10)
  1. XOPENEX [Concomitant]
     Active Substance: LEVALBUTEROL HYDROCHLORIDE
  2. DYSPORT [Suspect]
     Active Substance: ABOBOTULINUMTOXINA
     Indication: MIGRAINE
     Dosage: ?          OTHER STRENGTH:UNITS;OTHER FREQUENCY:EVERY 3 MONTHS;?
     Route: 058
     Dates: start: 20160622, end: 20160915
  3. B2 [Concomitant]
  4. VERAPAMIL [Concomitant]
     Active Substance: VERAPAMIL HYDROCHLORIDE
  5. SINGULAIR [Concomitant]
     Active Substance: MONTELUKAST SODIUM
  6. FUROCET [Concomitant]
  7. MVI [Concomitant]
     Active Substance: VITAMINS
  8. ADVIL [Concomitant]
     Active Substance: IBUPROFEN
  9. IMATREX [Concomitant]
  10. FLUOXETINE [Concomitant]
     Active Substance: FLUOXETINE HYDROCHLORIDE

REACTIONS (2)
  - Migraine [None]
  - Impaired work ability [None]

NARRATIVE: CASE EVENT DATE: 20160630
